FAERS Safety Report 6444537-2 (Version None)
Quarter: 2009Q4

REPORT INFORMATION
  Report Type: 
  Country: None (occurrence: None)
  Receive Date: 20091110
  Receipt Date: 20090924
  Transmission Date: 20100525
  Serious: No
  Sender: FDA-Public Use
  Company Number: 1000009082

PATIENT
  Age: 61 Year
  Sex: Female

DRUGS (9)
  1. SAVELLA [Suspect]
     Dosage: (12.5 MG, 1 IN 1 D), ORAL : 25 MG (12.5 MG, 2 IN 1 D), ORAL
     Route: 048
     Dates: start: 20090923, end: 20090923
  2. SAVELLA [Suspect]
     Dosage: (12.5 MG, 1 IN 1 D), ORAL : 25 MG (12.5 MG, 2 IN 1 D), ORAL
     Route: 048
     Dates: start: 20090924
  3. XANAX [Concomitant]
  4. POTASSIUM [Concomitant]
  5. VITAMIN D [Concomitant]
  6. ATENOLOL [Concomitant]
  7. LISINOPRIL [Concomitant]
  8. HYDROCHLOROTHIAZIDE [Concomitant]
  9. WELLBUTRIN [Concomitant]

REACTIONS (2)
  - HYPERHIDROSIS [None]
  - NAUSEA [None]
